FAERS Safety Report 12328994 (Version 3)
Quarter: 2021Q4

REPORT INFORMATION
  Report Type: Spontaneous
  Country: FR (occurrence: US)
  Receive Date: 20160503
  Receipt Date: 20211217
  Transmission Date: 20220303
  Serious: Yes (Disabling, Congenital Anomaly, Other)
  Sender: FDA-Public Use
  Company Number: FR-ABBVIE-16P-056-1619234-00

PATIENT
  Sex: Male

DRUGS (2)
  1. VALPROATE SODIUM [Suspect]
     Active Substance: VALPROATE SODIUM
     Indication: Maternal exposure timing unspecified
     Route: 064
  2. FOLIC ACID [Concomitant]
     Active Substance: FOLIC ACID
     Indication: Maternal exposure timing unspecified
     Route: 064

REACTIONS (17)
  - Sluggishness [Not Recovered/Not Resolved]
  - Drooling [Unknown]
  - Balance disorder [Unknown]
  - Cognitive disorder [Unknown]
  - Dysmorphism [Unknown]
  - Hypotonia neonatal [Unknown]
  - Psychomotor retardation [Unknown]
  - Bradyphrenia [Unknown]
  - Fine motor skill dysfunction [Unknown]
  - Executive dysfunction [Unknown]
  - Multiple congenital abnormalities [Unknown]
  - Speech disorder developmental [Unknown]
  - Disturbance in attention [Not Recovered/Not Resolved]
  - Learning disorder [Unknown]
  - Developmental delay [Not Recovered/Not Resolved]
  - Disturbance in attention [Unknown]
  - Foetal exposure during pregnancy [Unknown]
